FAERS Safety Report 17218606 (Version 1)
Quarter: 2019Q4

REPORT INFORMATION
  Report Type: Report from Study
  Country: JP (occurrence: JP)
  Receive Date: 20191231
  Receipt Date: 20191231
  Transmission Date: 20200122
  Serious: Yes (Other)
  Sender: FDA-Public Use
  Company Number: JP-ACTELION-A-CH2019-199622

PATIENT
  Age: 30 Year
  Sex: Female

DRUGS (7)
  1. PROGRAF [Suspect]
     Active Substance: TACROLIMUS
     Indication: SYSTEMIC LUPUS ERYTHEMATOSUS
     Dosage: 0.5-1 MG QD
     Route: 048
  2. GLUFAST [Concomitant]
     Active Substance: MITIGLINIDE
  3. OPSUMIT [Suspect]
     Active Substance: MACITENTAN
     Indication: PULMONARY ARTERIAL HYPERTENSION
     Dosage: 5 MG, QD
     Route: 048
     Dates: start: 20190223, end: 20190225
  4. PRAVASTATIN SODIUM. [Concomitant]
     Active Substance: PRAVASTATIN SODIUM
  5. FEBURIC [Concomitant]
     Active Substance: FEBUXOSTAT
  6. PREDONINE [Concomitant]
     Active Substance: PREDNISOLONE
  7. PARIET [Concomitant]
     Active Substance: RABEPRAZOLE SODIUM

REACTIONS (5)
  - Gamma-glutamyltransferase increased [Recovered/Resolved]
  - Hepatic enzyme increased [Recovered/Resolved]
  - Blood alkaline phosphatase increased [Recovered/Resolved]
  - Aspartate aminotransferase increased [Recovered/Resolved]
  - Alanine aminotransferase increased [Recovered/Resolved]

NARRATIVE: CASE EVENT DATE: 20190225
